FAERS Safety Report 9542966 (Version 1)
Quarter: 2013Q3

REPORT INFORMATION
  Report Type: Spontaneous
  Country: US (occurrence: US)
  Receive Date: 20130923
  Receipt Date: 20130923
  Transmission Date: 20140515
  Serious: No
  Sender: FDA-Public Use
  Company Number: US-ROXANE LABORATORIES, INC.-2013-RO-01564RO

PATIENT
  Sex: Male

DRUGS (1)
  1. PREDNISONE [Suspect]
     Indication: FOOT OPERATION
     Route: 048
     Dates: start: 20130918

REACTIONS (3)
  - Hiccups [Not Recovered/Not Resolved]
  - Retching [Not Recovered/Not Resolved]
  - Vomiting [Not Recovered/Not Resolved]
